FAERS Safety Report 7077681-X (Version None)
Quarter: 2010Q4

REPORT INFORMATION
  Report Type: 
  Country: None (occurrence: None)
  Receive Date: 20101101
  Receipt Date: 20101024
  Transmission Date: 20110411
  Serious: Yes (Other)
  Sender: FDA-Public Use
  Company Number: NL-BAXTER-2010BH025392

PATIENT
  Age: 68 Year
  Sex: Male

DRUGS (2)
  1. EXTRANEAL [Suspect]
     Indication: PERITONEAL DIALYSIS
     Route: 033
     Dates: end: 20100101
  2. PHYSIOSOL IN PLASTIC CONTAINER [Suspect]
     Indication: PERITONEAL DIALYSIS
     Route: 033
     Dates: end: 20100101

REACTIONS (2)
  - BACTERAEMIA [None]
  - ECZEMA [None]
